FAERS Safety Report 9593069 (Version 1)
Quarter: 2013Q4

REPORT INFORMATION
  Report Type: Spontaneous
  Country: JP (occurrence: JP)
  Receive Date: 20131004
  Receipt Date: 20131004
  Transmission Date: 20140711
  Serious: Yes (Death, Hospitalization, Other)
  Sender: FDA-Public Use
  Company Number: JP-ASTELLAS-2013US010327

PATIENT
  Age: 83 Year
  Sex: Female

DRUGS (14)
  1. TARCEVA [Suspect]
     Indication: LUNG ADENOCARCINOMA
     Dosage: 150 MG, UID/QD
     Route: 048
     Dates: start: 20120905, end: 20121022
  2. HERBESSER [Suspect]
     Indication: PRODUCT USED FOR UNKNOWN INDICATION
     Dosage: 100 MG, UID/QD
     Route: 048
     Dates: start: 20120607, end: 20130207
  3. LASIX                              /00032601/ [Concomitant]
     Indication: PRODUCT USED FOR UNKNOWN INDICATION
     Dosage: UNK
     Route: 048
  4. RABEPRAZOLE SODIUM [Concomitant]
     Indication: PRODUCT USED FOR UNKNOWN INDICATION
     Dosage: 10 MG, UID/QD
     Route: 048
     Dates: start: 20110615, end: 20130207
  5. EVISTA [Concomitant]
     Indication: PRODUCT USED FOR UNKNOWN INDICATION
     Dosage: 60 MG, UID/QD
     Route: 048
     Dates: start: 201108, end: 20130207
  6. CELECOX [Concomitant]
     Indication: PRODUCT USED FOR UNKNOWN INDICATION
     Dosage: 200 MG, UID/QD
     Route: 048
     Dates: start: 201108, end: 20130207
  7. MAINTATE [Concomitant]
     Indication: PRODUCT USED FOR UNKNOWN INDICATION
     Dosage: 5 MG, UID/QD
     Route: 048
     Dates: start: 201108, end: 20130207
  8. AVAPRO [Concomitant]
     Indication: PRODUCT USED FOR UNKNOWN INDICATION
     Dosage: 200 MG, UID/QD
     Route: 048
     Dates: start: 20120126, end: 20130207
  9. CARBOCISTEINE [Concomitant]
     Indication: PRODUCT USED FOR UNKNOWN INDICATION
     Dosage: 3,1500 MG, UID/QD
     Route: 048
     Dates: start: 20120224, end: 20130207
  10. CILNIDIPINE [Concomitant]
     Indication: PRODUCT USED FOR UNKNOWN INDICATION
     Dosage: 10 MG, UID/QD
     Route: 048
     Dates: start: 20120709, end: 20130207
  11. MEDICON                            /00048102/ [Concomitant]
     Indication: PRODUCT USED FOR UNKNOWN INDICATION
     Dosage: 0.9 G, UID/QD
     Route: 048
     Dates: start: 20120917, end: 20130107
  12. GLIMEPIRIDE [Concomitant]
     Indication: PRODUCT USED FOR UNKNOWN INDICATION
     Dosage: 0.5 MG, UID/QD
     Route: 048
     Dates: start: 20120927, end: 20121022
  13. VILDAGLIPTIN [Concomitant]
     Indication: PRODUCT USED FOR UNKNOWN INDICATION
     Dosage: 50 MG, 2 IN ONE DAY
     Route: 048
     Dates: start: 20120927, end: 20121216
  14. GENINAX [Concomitant]
     Indication: PRODUCT USED FOR UNKNOWN INDICATION
     Dosage: 400 MG, UID/QD
     Route: 048
     Dates: start: 20121017, end: 20121022

REACTIONS (7)
  - Interstitial lung disease [Recovering/Resolving]
  - Hypoglycaemia [Recovered/Resolved]
  - Pulmonary congestion [Unknown]
  - Pulmonary oedema [Unknown]
  - Cardiac failure [Unknown]
  - Malignant neoplasm progression [Fatal]
  - Pneumonia bacterial [Unknown]
